FAERS Safety Report 10210953 (Version 1)
Quarter: 2014Q2

REPORT INFORMATION
  Report Type: Spontaneous
  Country: IT (occurrence: IT)
  Receive Date: 20140602
  Receipt Date: 20140602
  Transmission Date: 20141212
  Serious: Yes (Hospitalization)
  Sender: FDA-Public Use
  Company Number: IT-WATSON-2014-11256

PATIENT
  Sex: Female

DRUGS (4)
  1. BROMAZEPAM (UNKNOWN) [Suspect]
     Indication: INSOMNIA
     Dosage: 50 MG, DAILY
     Route: 048
     Dates: start: 20110926, end: 20120926
  2. LORAZEPAM (UNKNOWN) [Suspect]
     Indication: INSOMNIA
     Dosage: 75 MG, DAILY
     Route: 048
     Dates: start: 20110926, end: 20120926
  3. ALPRAZOLAM (UNKNOWN) [Suspect]
     Indication: INSOMNIA
     Dosage: 10 MG, DAILY
     Route: 048
     Dates: start: 20110926, end: 20120926
  4. DIAZEPAM (UNKNOWN) [Suspect]
     Indication: INSOMNIA
     Dosage: 200 MG, DAILY
     Route: 048
     Dates: start: 20110926, end: 20120926

REACTIONS (1)
  - Drug dependence [Recovering/Resolving]
